FAERS Safety Report 23250847 (Version 1)
Quarter: 2023Q4

REPORT INFORMATION
  Report Type: Report from Study
  Country: US (occurrence: None)
  Receive Date: 20231201
  Receipt Date: 20231201
  Transmission Date: 20240110
  Serious: Yes (Death)
  Sender: FDA-Public Use
  Company Number: 2023A272572

PATIENT
  Sex: Female
  Weight: 78.9 kg

DRUGS (6)
  1. IMFINZI [Suspect]
     Active Substance: DURVALUMAB
     Indication: Lung carcinoma cell type unspecified stage 0
  2. DEXAMETHASONE [Concomitant]
     Active Substance: DEXAMETHASONE
  3. DIPHENHYDRAMINE [Concomitant]
     Active Substance: DIPHENHYDRAMINE
  4. FAMOTIDINE [Concomitant]
     Active Substance: FAMOTIDINE
  5. HEPARIN [Concomitant]
     Active Substance: HEPARIN SODIUM
  6. ONDANSETRON [Concomitant]
     Active Substance: ONDANSETRON

REACTIONS (1)
  - Death [Fatal]
